FAERS Safety Report 5877457-2 (Version None)
Quarter: 2008Q3

REPORT INFORMATION
  Report Type: 
  Country: None (occurrence: None)
  Receive Date: 20080909
  Receipt Date: 20080826
  Transmission Date: 20090109
  Serious: Yes (Hospitalization)
  Sender: FDA-Public Use
  Company Number: 2008S1015744

PATIENT
  Age: 44 Year
  Sex: Female

DRUGS (5)
  1. FENTANYL TRANSDERMAL SYSTEM [Suspect]
     Indication: ABDOMINAL PAIN
     Dosage: 100 UG; EVERY HOUR; TRANSDERMAL; 100 UG; EVERY HOUR, TRANSDERMAL
     Route: 062
     Dates: start: 20080201, end: 20080201
  2. FENTANYL TRANSDERMAL SYSTEM [Suspect]
     Indication: ABDOMINAL PAIN
     Dosage: 100 UG; EVERY HOUR; TRANSDERMAL; 100 UG; EVERY HOUR, TRANSDERMAL
     Route: 062
     Dates: start: 20080801
  3. DILAUDID [Concomitant]
  4. ERYTHROMYCIN [Concomitant]
  5. HUMALOG [Concomitant]

REACTIONS (6)
  - ABDOMINAL PAIN [None]
  - ANOREXIA [None]
  - DIABETIC KETOACIDOSIS [None]
  - DRUG INEFFECTIVE [None]
  - PHARMACEUTICAL PRODUCT COMPLAINT [None]
  - THERAPEUTIC RESPONSE UNEXPECTED WITH DRUG SUBSTITUTION [None]
